FAERS Safety Report 20560535 (Version 1)
Quarter: 2022Q1

REPORT INFORMATION
  Report Type: Spontaneous
  Country: US (occurrence: None)
  Receive Date: 20220307
  Receipt Date: 20220307
  Transmission Date: 20220423
  Serious: Yes (Death)
  Sender: FDA-Public Use
  Company Number: None

PATIENT
  Age: 59 Year
  Sex: Male

DRUGS (15)
  1. DUPIXENT [Suspect]
     Active Substance: DUPILUMAB
     Indication: Asthma
     Dates: start: 20210322, end: 20220113
  2. ALENDRONATE [Concomitant]
     Active Substance: ALENDRONATE SODIUM
  3. ASPIRIN [Concomitant]
  4. BROVANA [Concomitant]
  5. PULMICORT TURBUHALER [Concomitant]
     Active Substance: BUDESONIDE
  6. VENTOLIN HFA INH [Concomitant]
  7. ATORVASTATIN [Concomitant]
  8. BUDESONIDE [Concomitant]
  9. DILTIAZEM CD [Concomitant]
  10. FAMOTIDINE [Concomitant]
  11. IBUPROFEN [Concomitant]
  12. IPRATROPI/ALB [Concomitant]
  13. METFORMIN [Concomitant]
  14. MONTELUKAST [Concomitant]
  15. PRASUGREL [Concomitant]

REACTIONS (1)
  - Death [None]

NARRATIVE: CASE EVENT DATE: 20220113
